FAERS Safety Report 19494626 (Version 1)
Quarter: 2021Q3

REPORT INFORMATION
  Report Type: Report from Study
  Country: BR (occurrence: BR)
  Receive Date: 20210705
  Receipt Date: 20210705
  Transmission Date: 20211014
  Serious: Yes (Life-Threatening, Hospitalization, Other)
  Sender: FDA-Public Use
  Company Number: NVSC2019BR095619

PATIENT
  Age: 63 Year
  Sex: Female
  Weight: 65 kg

DRUGS (5)
  1. TAMOXIFEN [Suspect]
     Active Substance: TAMOXIFEN
     Indication: PRODUCT USED FOR UNKNOWN INDICATION
     Route: 065
  2. VERAPAMIL [Suspect]
     Active Substance: VERAPAMIL HYDROCHLORIDE
     Indication: PRODUCT USED FOR UNKNOWN INDICATION
     Route: 065
  3. KISQALI [Suspect]
     Active Substance: RIBOCICLIB
     Indication: BREAST CANCER
  4. FEMARA [Suspect]
     Active Substance: LETROZOLE
     Indication: BREAST CANCER METASTATIC
     Route: 065
  5. KISQALI [Suspect]
     Active Substance: RIBOCICLIB
     Indication: BREAST CANCER METASTATIC
     Route: 065

REACTIONS (99)
  - Arrhythmia [Unknown]
  - Asthenia [Not Recovered/Not Resolved]
  - Bone pain [Unknown]
  - Device failure [Unknown]
  - Dysphagia [Unknown]
  - Metastases to pleura [Unknown]
  - Breast cancer recurrent [Unknown]
  - Liver function test increased [Unknown]
  - Skin wrinkling [Unknown]
  - Nail disorder [Unknown]
  - Glossodynia [Not Recovered/Not Resolved]
  - Gingival bleeding [Not Recovered/Not Resolved]
  - Hyperhidrosis [Not Recovered/Not Resolved]
  - Skin discolouration [Not Recovered/Not Resolved]
  - Thrombophlebitis superficial [Not Recovered/Not Resolved]
  - Tachycardia [Unknown]
  - Blood test abnormal [Unknown]
  - Pelvic pain [Unknown]
  - Arthralgia [Unknown]
  - Burning sensation [Unknown]
  - Rash papular [Not Recovered/Not Resolved]
  - Infection [Recovered/Resolved]
  - Oral herpes [Not Recovered/Not Resolved]
  - Aphthous ulcer [Not Recovered/Not Resolved]
  - Mood swings [Not Recovered/Not Resolved]
  - Pleural effusion [Unknown]
  - Influenza [Not Recovered/Not Resolved]
  - Catarrh [Unknown]
  - Pubic pain [Unknown]
  - Pain in extremity [Not Recovered/Not Resolved]
  - Decreased appetite [Recovered/Resolved]
  - Blister [Unknown]
  - Limb discomfort [Not Recovered/Not Resolved]
  - Toxicity to various agents [Unknown]
  - Neoplasm malignant [Not Recovered/Not Resolved]
  - Choking [Not Recovered/Not Resolved]
  - Metastases to spine [Unknown]
  - Skin exfoliation [Unknown]
  - Decreased immune responsiveness [Unknown]
  - Muscle injury [Unknown]
  - Pulmonary pain [Unknown]
  - Hypertension [Unknown]
  - Dyspnoea [Not Recovered/Not Resolved]
  - Urinary incontinence [Unknown]
  - Head discomfort [Unknown]
  - Off label use [Unknown]
  - Fatigue [Not Recovered/Not Resolved]
  - Liver disorder [Unknown]
  - Muscle spasms [Unknown]
  - Dysphonia [Unknown]
  - Dyspepsia [Unknown]
  - Vertigo [Unknown]
  - Drug ineffective [Unknown]
  - Rash [Not Recovered/Not Resolved]
  - Lip dry [Not Recovered/Not Resolved]
  - Chronic obstructive pulmonary disease [Unknown]
  - Feeling abnormal [Not Recovered/Not Resolved]
  - Drug-induced liver injury [Unknown]
  - Cough [Not Recovered/Not Resolved]
  - Speech disorder [Unknown]
  - Malaise [Not Recovered/Not Resolved]
  - Medication error [Unknown]
  - Chest discomfort [Unknown]
  - Gingival pain [Not Recovered/Not Resolved]
  - Paraesthesia [Not Recovered/Not Resolved]
  - Erythema [Not Recovered/Not Resolved]
  - Chest pain [Not Recovered/Not Resolved]
  - Pallor [Not Recovered/Not Resolved]
  - Memory impairment [Unknown]
  - Pleuritic pain [Unknown]
  - Abdominal distension [Unknown]
  - Gait disturbance [Unknown]
  - Sleep disorder [Not Recovered/Not Resolved]
  - Oropharyngeal pain [Unknown]
  - Urine abnormality [Unknown]
  - Dry skin [Not Recovered/Not Resolved]
  - Movement disorder [Unknown]
  - Aphasia [Recovered/Resolved]
  - Feeling hot [Not Recovered/Not Resolved]
  - Abdominal pain upper [Unknown]
  - Nausea [Not Recovered/Not Resolved]
  - Mass [Not Recovered/Not Resolved]
  - Lip injury [Not Recovered/Not Resolved]
  - Eating disorder [Unknown]
  - Apathy [Not Recovered/Not Resolved]
  - Pain [Not Recovered/Not Resolved]
  - Myocardial infarction [Not Recovered/Not Resolved]
  - Arthralgia [Not Recovered/Not Resolved]
  - Peripheral swelling [Not Recovered/Not Resolved]
  - Headache [Not Recovered/Not Resolved]
  - Lung disorder [Unknown]
  - Overweight [Unknown]
  - Pruritus [Not Recovered/Not Resolved]
  - Alopecia [Unknown]
  - Pain of skin [Unknown]
  - Hypoaesthesia [Unknown]
  - Dizziness [Not Recovered/Not Resolved]
  - Transaminases increased [Recovered/Resolved]
  - Abdominal pain [Unknown]

NARRATIVE: CASE EVENT DATE: 201904
